FAERS Safety Report 18942662 (Version 1)
Quarter: 2021Q1

REPORT INFORMATION
  Report Type: Spontaneous
  Country: DE (occurrence: DE)
  Receive Date: 20210225
  Receipt Date: 20210225
  Transmission Date: 20210420
  Serious: Yes (Hospitalization)
  Sender: FDA-Public Use
  Company Number: DE-STEMLINE THERAPEUTICS, INC.-2021ST000006

PATIENT
  Age: 79 Year
  Sex: Male

DRUGS (1)
  1. ELZONRIS [Suspect]
     Active Substance: TAGRAXOFUSP-ERZS
     Indication: PRODUCT USED FOR UNKNOWN INDICATION
     Dosage: INFUSION DATES: 10?FEB?2021 THROUGH 12?FEB?2021, 15?FEB?2021, 17?FEB?2021
     Route: 042
     Dates: start: 20210210, end: 20210217

REACTIONS (2)
  - Capillary leak syndrome [Recovered/Resolved]
  - Pyrexia [Unknown]

NARRATIVE: CASE EVENT DATE: 20210216
